FAERS Safety Report 6855683-3 (Version None)
Quarter: 2010Q3

REPORT INFORMATION
  Report Type: 
  Country: None (occurrence: None)
  Receive Date: 20100719
  Receipt Date: 20100430
  Transmission Date: 20110219
  Serious: No
  Sender: FDA-Public Use
  Company Number: US-KINGPHARMUSA00001-K201000558

PATIENT
  Sex: Female
  Weight: 74.83 kg

DRUGS (3)
  1. LEVOXYL [Suspect]
     Indication: HYPOTHYROIDISM
     Dosage: UNK
     Route: 048
     Dates: start: 20070101, end: 20070101
  2. LEVOXYL [Suspect]
     Dosage: UNK
     Dates: start: 20080101, end: 20080101
  3. LEVOXYL [Suspect]
     Dosage: 12.5 MCG, QD
     Route: 048
     Dates: start: 20100401

REACTIONS (5)
  - DYSPNOEA [None]
  - EXERCISE TOLERANCE DECREASED [None]
  - FOOD INTOLERANCE [None]
  - HYPERSENSITIVITY [None]
  - PANIC ATTACK [None]
